FAERS Safety Report 14241731 (Version 2)
Quarter: 2017Q4

REPORT INFORMATION
  Report Type: Spontaneous
  Country: US (occurrence: US)
  Receive Date: 20171201
  Receipt Date: 20171207
  Transmission Date: 20180321
  Serious: No
  Sender: FDA-Public Use
  Company Number: US-ASTRAZENECA-2017SF21709

PATIENT
  Sex: Female

DRUGS (1)
  1. SYMBICORT [Suspect]
     Active Substance: BUDESONIDE\FORMOTEROL FUMARATE DIHYDRATE
     Dosage: 80/4.5 MICROGRAMS TWO PUFFS FREQUENCY UNKNOWN UNKNOWN
     Route: 055

REACTIONS (4)
  - Drug dose omission [Unknown]
  - Cough [Unknown]
  - Device failure [Unknown]
  - Drug ineffective [Unknown]
